FAERS Safety Report 5223999-2 (Version None)
Quarter: 2007Q1

REPORT INFORMATION
  Report Type: 
  Country: None (occurrence: None)
  Receive Date: 20070130
  Receipt Date: 20070126
  Transmission Date: 20070707
  Serious: Yes (Hospitalization)
  Sender: FDA-Public Use
  Company Number: DE-GLAXOSMITHKLINE-D0052145A

PATIENT
  Age: 74 Year
  Sex: Female

DRUGS (3)
  1. QUILONUM RETARD [Suspect]
     Dosage: 450MG PER DAY
     Route: 048
  2. DYTIDE H [Suspect]
     Dosage: 75MG UNKNOWN
     Route: 048
  3. FUROSEMIDE [Suspect]
     Route: 048

REACTIONS (4)
  - ANTIPSYCHOTIC DRUG LEVEL INCREASED [None]
  - FATIGUE [None]
  - GAIT DISTURBANCE [None]
  - TREMOR [None]
